FAERS Safety Report 12877042 (Version 1)
Quarter: 2016Q4

REPORT INFORMATION
  Report Type: Spontaneous
  Country: CH (occurrence: CH)
  Receive Date: 20161024
  Receipt Date: 20161024
  Transmission Date: 20170207
  Serious: Yes (Hospitalization, Other)
  Sender: FDA-Public Use
  Company Number: CH-PFIZER INC-2016488678

PATIENT
  Age: 69 Year
  Sex: Female

DRUGS (10)
  1. CYMBALTA [Concomitant]
     Active Substance: DULOXETINE HYDROCHLORIDE
     Dosage: UNK
  2. LYRICA [Concomitant]
     Active Substance: PREGABALIN
  3. DOXORUBICIN HCL [Suspect]
     Active Substance: DOXORUBICIN HYDROCHLORIDE
     Indication: ADULT T-CELL LYMPHOMA/LEUKAEMIA STAGE IV
     Dosage: 400 MG/M2, UNK
     Route: 041
     Dates: start: 201507, end: 201509
  4. TEMESTA [Suspect]
     Active Substance: LORAZEPAM
     Indication: PANIC DISORDER
     Dosage: 1 DF, 2X/DAY
     Route: 048
     Dates: end: 20160913
  5. PANTOZOL [Suspect]
     Active Substance: PANTOPRAZOLE SODIUM
     Route: 048
     Dates: start: 201510, end: 20160912
  6. MARCOUMAR [Suspect]
     Active Substance: PHENPROCOUMON
     Indication: INTRACARDIAC THROMBUS
     Route: 048
     Dates: start: 201503, end: 20160912
  7. TORASEMID [Concomitant]
     Active Substance: TORSEMIDE
     Dosage: UNK
  8. ADCETRIS [Suspect]
     Active Substance: BRENTUXIMAB VEDOTIN
     Indication: ADULT T-CELL LYMPHOMA/LEUKAEMIA STAGE IV
     Route: 042
     Dates: start: 20160616, end: 20160726
  9. SURMONTIL [Suspect]
     Active Substance: TRIMIPRAMINE MALEATE
     Indication: AGITATED DEPRESSION
     Dosage: 25 MG, 1X/DAY
     Route: 048
     Dates: start: 201508, end: 20160908
  10. BELOC [Concomitant]
     Active Substance: METOPROLOL TARTRATE
     Dosage: UNK

REACTIONS (9)
  - Alanine aminotransferase increased [Recovering/Resolving]
  - Blood alkaline phosphatase increased [Recovering/Resolving]
  - International normalised ratio increased [Recovering/Resolving]
  - Neutropenia [Recovering/Resolving]
  - Cystitis bacterial [Recovering/Resolving]
  - Cardiac failure [Not Recovered/Not Resolved]
  - Liver injury [Recovering/Resolving]
  - Leukopenia [Recovered/Resolved]
  - Bicytopenia [Recovering/Resolving]

NARRATIVE: CASE EVENT DATE: 201510
